FAERS Safety Report 25546857 (Version 1)
Quarter: 2025Q3

REPORT INFORMATION
  Report Type: Spontaneous
  Country: US (occurrence: US)
  Receive Date: 20250714
  Receipt Date: 20250714
  Transmission Date: 20251021
  Serious: Yes (Death, Life-Threatening, Hospitalization, Other)
  Sender: Unknown Manufacturer
  Company Number: US-862174955-ML2025-03373

PATIENT
  Age: 64 Year
  Sex: Female

DRUGS (4)
  1. APIXABAN [Suspect]
     Active Substance: APIXABAN
     Indication: Product used for unknown indication
     Dosage: CONSUMED LARGE AMOUNT IN THE MORNING ON THE DAY BEFORE SHE CAME TO THE HOSPITAL
     Route: 048
  2. AMLODIPINE [Suspect]
     Active Substance: AMLODIPINE BESYLATE
     Indication: Product used for unknown indication
     Dosage: CONSUMED LARGE AMOUNT IN THE MORNING ON THE DAY BEFORE SHE CAME TO THE HOSPITAL
     Route: 048
  3. TORSEMIDE [Suspect]
     Active Substance: TORSEMIDE
     Indication: Product used for unknown indication
     Dosage: CONSUMED LARGE AMOUNT IN THE MORNING ON THE DAY BEFORE SHE CAME TO THE HOSPITAL
     Route: 048
  4. SERTRALINE [Concomitant]
     Active Substance: SERTRALINE HYDROCHLORIDE
     Indication: Product used for unknown indication
     Dosage: AT BEDTIME
     Route: 048

REACTIONS (8)
  - Acute kidney injury [Fatal]
  - Hypotension [Fatal]
  - Hypovolaemia [Fatal]
  - Completed suicide [Fatal]
  - Renal ischaemia [Fatal]
  - Drug interaction [Fatal]
  - Intentional overdose [Fatal]
  - Overdose [Fatal]
